FAERS Safety Report 18321728 (Version 4)
Quarter: 2020Q4

REPORT INFORMATION
  Report Type: Report from Study
  Country: SK (occurrence: SK)
  Receive Date: 20200928
  Receipt Date: 20201104
  Transmission Date: 20210113
  Serious: Yes (Hospitalization, Other)
  Sender: FDA-Public Use
  Company Number: SK-JNJFOC-A-CH2020-207527

PATIENT
  Age: 50 Year
  Sex: Female
  Weight: 57 kg

DRUGS (34)
  1. UPTRAVI [Suspect]
     Active Substance: SELEXIPAG
     Dosage: 800 MCG, QD
     Route: 048
     Dates: start: 20200219, end: 20200226
  2. UPTRAVI [Suspect]
     Active Substance: SELEXIPAG
     Dosage: 1200 MCG, QD
     Route: 048
     Dates: start: 20200226, end: 20200304
  3. UPTRAVI [Suspect]
     Active Substance: SELEXIPAG
     Dosage: 1600 MCG, QD
     Route: 048
     Dates: start: 20200304, end: 20200325
  4. OPSUMIT [Suspect]
     Active Substance: MACITENTAN
     Dosage: 20 MG, QD
     Route: 048
     Dates: start: 20200904
  5. SILDENAFIL. [Concomitant]
     Active Substance: SILDENAFIL
     Indication: PULMONARY ARTERIAL HYPERTENSION
     Dosage: 60 MG, QD
     Route: 048
     Dates: start: 20130619, end: 20200904
  6. HYDROCHLOROTIAZID [Concomitant]
     Indication: RIGHT VENTRICULAR FAILURE
     Dosage: UNK
     Route: 048
     Dates: start: 20200626, end: 20200830
  7. REMODULIN [Concomitant]
     Active Substance: TREPROSTINIL
     Indication: PULMONARY ARTERIAL HYPERTENSION
     Dates: start: 20200918, end: 20201001
  8. REMODULIN [Concomitant]
     Active Substance: TREPROSTINIL
     Dates: start: 20200914, end: 20200915
  9. UPTRAVI [Suspect]
     Active Substance: SELEXIPAG
     Indication: PULMONARY ARTERIAL HYPERTENSION
     Dosage: 2000 MCG, QD
     Route: 048
     Dates: start: 20200325, end: 20200604
  10. UPTRAVI [Suspect]
     Active Substance: SELEXIPAG
     Dosage: 1200 MCG, QD
     Route: 048
     Dates: start: 20200604, end: 20200908
  11. SILDENAFIL. [Concomitant]
     Active Substance: SILDENAFIL
     Dosage: 30 MG, QD
     Route: 048
     Dates: start: 20200904
  12. REMODULIN [Concomitant]
     Active Substance: TREPROSTINIL
     Dates: start: 20200916, end: 20200918
  13. REMODULIN [Concomitant]
     Active Substance: TREPROSTINIL
     Dates: start: 20200911, end: 20200912
  14. REMODULIN [Concomitant]
     Active Substance: TREPROSTINIL
     Dates: start: 20200908, end: 20200909
  15. UPTRAVI [Suspect]
     Active Substance: SELEXIPAG
     Dosage: 400 UG, QD
     Route: 048
     Dates: start: 20200910, end: 20200911
  16. BISOPROLOL [Concomitant]
     Active Substance: BISOPROLOL
     Indication: ARRHYTHMIA
     Dosage: UNK
     Route: 048
     Dates: start: 20120101
  17. ALLOPURINOL. [Concomitant]
     Active Substance: ALLOPURINOL
     Indication: HYPERURICAEMIA
     Dosage: UNK
     Route: 048
     Dates: start: 20200606
  18. FUROSEMID [FUROSEMIDE] [Concomitant]
     Active Substance: FUROSEMIDE
     Indication: RIGHT VENTRICULAR FAILURE
     Dosage: UNK
     Route: 048
     Dates: start: 20160101
  19. OMEPRAZOLE. [Concomitant]
     Active Substance: OMEPRAZOLE
     Indication: PROPHYLAXIS
     Dosage: UNK
     Route: 048
     Dates: start: 20200606
  20. UPTRAVI [Suspect]
     Active Substance: SELEXIPAG
     Dosage: 400 MCG, QD
     Route: 048
     Dates: start: 20200212, end: 20200219
  21. UPTRAVI [Suspect]
     Active Substance: SELEXIPAG
     Dosage: 800 UG, QD
     Route: 048
     Dates: start: 20200908, end: 20200910
  22. L-THYROXINE [LEVOTHYROXINE] [Concomitant]
     Active Substance: LEVOTHYROXINE
     Indication: HYPOTHYROIDISM
     Dosage: UNK
     Route: 048
     Dates: start: 20180516
  23. REMODULIN [Concomitant]
     Active Substance: TREPROSTINIL
     Dates: start: 20200910, end: 20200911
  24. REMODULIN [Concomitant]
     Active Substance: TREPROSTINIL
     Dates: start: 20201009
  25. OPSUMIT [Suspect]
     Active Substance: MACITENTAN
     Indication: PULMONARY ARTERIAL HYPERTENSION
     Dosage: 10 MG, QD
     Route: 048
     Dates: start: 20170724, end: 20200610
  26. ORFARIN [Concomitant]
     Active Substance: WARFARIN SODIUM
     Indication: ARRHYTHMIA
     Dosage: UNK
     Route: 048
     Dates: start: 20120101
  27. REMODULIN [Concomitant]
     Active Substance: TREPROSTINIL
     Dates: start: 20200915, end: 20200916
  28. REMODULIN [Concomitant]
     Active Substance: TREPROSTINIL
     Dates: start: 20200913, end: 20200914
  29. REMODULIN [Concomitant]
     Active Substance: TREPROSTINIL
     Dates: start: 20200912, end: 20200913
  30. REMODULIN [Concomitant]
     Active Substance: TREPROSTINIL
     Dates: start: 20200909, end: 20200910
  31. REMODULIN [Concomitant]
     Active Substance: TREPROSTINIL
     Dates: start: 20201001, end: 20201005
  32. BISOPROLOL [Concomitant]
     Active Substance: BISOPROLOL
     Indication: RIGHT VENTRICULAR DYSFUNCTION
  33. VEROSPIRON [Concomitant]
     Active Substance: SPIRONOLACTONE
     Indication: CARDIAC FAILURE CONGESTIVE
     Dosage: UNK
     Route: 048
     Dates: start: 20160101
  34. REMODULIN [Concomitant]
     Active Substance: TREPROSTINIL
     Dates: start: 20201005, end: 20201009

REACTIONS (11)
  - Anaemia [Recovering/Resolving]
  - Haemoglobin decreased [Recovering/Resolving]
  - Renal impairment [Recovering/Resolving]
  - Atrial flutter [Recovering/Resolving]
  - Acute kidney injury [Unknown]
  - Right ventricular dysfunction [Recovering/Resolving]
  - Right ventricular failure [Recovering/Resolving]
  - Packed red blood cell transfusion [Unknown]
  - Hypotension [Recovering/Resolving]
  - Blood creatinine increased [Recovering/Resolving]
  - Tachyarrhythmia [Recovering/Resolving]

NARRATIVE: CASE EVENT DATE: 20200604
